FAERS Safety Report 6160697-5 (Version None)
Quarter: 2009Q2

REPORT INFORMATION
  Report Type: 
  Country: None (occurrence: None)
  Receive Date: 20090420
  Receipt Date: 20090408
  Transmission Date: 20091009
  Serious: Yes (Disabling)
  Sender: FDA-Public Use
  Company Number: FR-TEVA-188377ISR

PATIENT
  Sex: Female

DRUGS (3)
  1. BUDESONIDE [Suspect]
     Route: 055
     Dates: start: 20090309, end: 20090310
  2. CEFTRIAXONE [Concomitant]
     Route: 030
     Dates: start: 20090309, end: 20090314
  3. METHYLPREDNISOLONE 4MG TAB [Concomitant]
     Route: 030
     Dates: start: 20090309, end: 20090314

REACTIONS (2)
  - AGEUSIA [None]
  - ANOSMIA [None]
